FAERS Safety Report 8962671 (Version 1)
Quarter: 2012Q4

REPORT INFORMATION
  Report Type: 
  Country: FR (occurrence: FR)
  Receive Date: 20121213
  Receipt Date: 20121213
  Transmission Date: 20130627
  Serious: Yes (Hospitalization)
  Sender: FDA-Public Use
  Company Number: FR-MYLANLABS-2012S1024787

PATIENT
  Age: 93 Year
  Sex: Female

DRUGS (1)
  1. ETIDRONIC ACID [Suspect]
     Indication: OSTEITIS DEFORMANS
     Dosage: 5 mg/kg/day
     Route: 065

REACTIONS (3)
  - Osteomalacia [Recovering/Resolving]
  - Fracture [Unknown]
  - Incorrect drug administration duration [Recovered/Resolved]
